FAERS Safety Report 20484843 (Version 2)
Quarter: 2022Q4

REPORT INFORMATION
  Report Type: Spontaneous
  Country: CA (occurrence: CA)
  Receive Date: 20220217
  Receipt Date: 20221021
  Transmission Date: 20230113
  Serious: Yes (Hospitalization, Other)
  Sender: FDA-Public Use
  Company Number: CA-ABBVIE-22K-028-4281772-00

PATIENT
  Age: 60 Year
  Sex: Male

DRUGS (3)
  1. HUMIRA [Suspect]
     Active Substance: ADALIMUMAB
     Indication: Psoriasis
     Route: 058
  2. HUMIRA [Suspect]
     Active Substance: ADALIMUMAB
     Indication: Psoriatic arthropathy
  3. VAXZEVRIA [Suspect]
     Active Substance: AZD-1222
     Indication: COVID-19 prophylaxis
     Dosage: VIAL CONTAINED 10 DOSES OF 0.5 ML
     Route: 030

REACTIONS (6)
  - Tumour perforation [Unknown]
  - Gastrointestinal stromal tumour [Unknown]
  - Abdominal pain [Unknown]
  - Psoriatic arthropathy [Unknown]
  - Inflammatory bowel disease [Unknown]
  - Psoriatic arthropathy [Unknown]
